FAERS Safety Report 14216154 (Version 7)
Quarter: 2018Q4

REPORT INFORMATION
  Report Type: Report from Study
  Country: TW (occurrence: TW)
  Receive Date: 20171122
  Receipt Date: 20181129
  Transmission Date: 20190204
  Serious: Yes (Hospitalization)
  Sender: FDA-Public Use
  Company Number: TW-BAUSCH-BL-2017-031707

PATIENT
  Age: 43 Year
  Sex: Male
  Weight: 82 kg

DRUGS (6)
  1. FAMOTIDINE. [Concomitant]
     Active Substance: FAMOTIDINE
     Indication: PROPHYLAXIS
     Route: 048
     Dates: start: 20171109, end: 20171117
  2. MGO [Concomitant]
     Active Substance: MAGNESIUM OXIDE
     Indication: PROPHYLAXIS
     Route: 048
     Dates: start: 20171106, end: 20171108
  3. CHLORZOXAZONE. [Concomitant]
     Active Substance: CHLORZOXAZONE
     Indication: ANKYLOSING SPONDYLITIS
     Route: 048
     Dates: start: 20091119
  4. 4827-006 (BRODALUMAB) [Suspect]
     Active Substance: BRODALUMAB
     Route: 058
     Dates: start: 20171206
  5. 4827-006 (BRODALUMAB) [Suspect]
     Active Substance: BRODALUMAB
     Indication: ANKYLOSING SPONDYLITIS
     Route: 058
     Dates: start: 20171013, end: 20171027
  6. CELEBREX [Suspect]
     Active Substance: CELECOXIB
     Indication: ANKYLOSING SPONDYLITIS
     Route: 048
     Dates: start: 20151023

REACTIONS (1)
  - Herpes zoster oticus [Recovered/Resolved]

NARRATIVE: CASE EVENT DATE: 20171028
